FAERS Safety Report 9280411 (Version 1)
Quarter: 2013Q2

REPORT INFORMATION
  Report Type: Spontaneous
  Country: DK (occurrence: GB)
  Receive Date: 20130509
  Receipt Date: 20130509
  Transmission Date: 20140414
  Serious: Yes (Other)
  Sender: FDA-Public Use
  Company Number: GB-FRI-1000045027

PATIENT
  Sex: Female

DRUGS (1)
  1. CITALOPRAM [Suspect]
     Route: 048
     Dates: start: 201304

REACTIONS (1)
  - Epilepsy [Recovered/Resolved]
